FAERS Safety Report 4721738-2 (Version None)
Quarter: 2005Q3

REPORT INFORMATION
  Report Type: 
  Country: None (occurrence: None)
  Receive Date: 20050721
  Receipt Date: 20050323
  Transmission Date: 20060218
  Serious: No
  Sender: FDA-Public Use
  Company Number: US-BRISTOL-MYERS SQUIBB COMPANY-12908604

PATIENT
  Age: 80 Year
  Sex: Male

DRUGS (5)
  1. COUMADIN [Suspect]
     Indication: ATRIAL FIBRILLATION
     Dosage: INCR TO 3MG/DAY ON 01-FEB-2005; DECR TO 2MG/DAY ON 15-FEB-2005; INCR TO 2.5MG/DAY ON 09-MAR-2005
     Route: 048
     Dates: start: 20050201
  2. NAMENDA [Suspect]
     Indication: DEMENTIA
     Route: 048
     Dates: start: 20050201, end: 20050215
  3. SYNTHROID [Concomitant]
  4. SINEMET [Concomitant]
  5. DIGOXIN [Concomitant]

REACTIONS (1)
  - INTERNATIONAL NORMALISED RATIO INCREASED [None]
